FAERS Safety Report 8556342-1 (Version None)
Quarter: 2012Q3

REPORT INFORMATION
  Report Type: 
  Country: None (occurrence: None)
  Receive Date: 20120801
  Receipt Date: 20120726
  Transmission Date: 20120928
  Serious: No
  Sender: FDA-Public Use
  Company Number: US-PFIZER INC-2012181849

PATIENT
  Sex: Female
  Weight: 172 kg

DRUGS (7)
  1. IBUPROFEN (ADVIL) [Suspect]
     Indication: SCIATICA
  2. SIMVASTATIN [Concomitant]
     Indication: ATRIOVENTRICULAR BLOCK
     Dosage: 40 MG, DAILY
  3. LEVOTHYROXINE [Concomitant]
     Indication: THYROID DISORDER
     Dosage: 125 UG, DAILY
  4. ASPIRIN [Concomitant]
     Indication: ATRIOVENTRICULAR BLOCK
     Dosage: 81 MG, 2X/DAY
  5. METOPROLOL [Concomitant]
     Indication: ATRIOVENTRICULAR BLOCK
     Dosage: 25 MG, 2X/DAY
  6. IBUPROFEN (ADVIL) [Suspect]
     Indication: HEADACHE
     Dosage: 600 MG, EVERY 4 HRS
     Route: 048
     Dates: start: 20120723
  7. PLAVIX [Concomitant]
     Indication: ATRIOVENTRICULAR BLOCK
     Dosage: 75 MG, DAILY

REACTIONS (1)
  - OVERDOSE [None]
